FAERS Safety Report 4622339-7 (Version None)
Quarter: 2005Q1

REPORT INFORMATION
  Report Type: 
  Country: None (occurrence: None)
  Receive Date: 20050330
  Receipt Date: 20040503
  Transmission Date: 20050727
  Serious: No
  Sender: FDA-Public Use
  Company Number: US-BRISTOL-MYERS SQUIBB COMPANY-12578589

PATIENT
  Age: 52 Year
  Sex: Male
  Weight: 71 kg

DRUGS (2)
  1. WESTCORT [Suspect]
     Indication: ACNE
     Dosage: TWO TUBES WITH THE ABOVE LOT NUMBER
     Route: 061
  2. VITAMINS [Concomitant]

REACTIONS (1)
  - DRUG EFFECT DECREASED [None]
